FAERS Safety Report 16845683 (Version 1)
Quarter: 2019Q3

REPORT INFORMATION
  Report Type: Spontaneous
  Country: US (occurrence: US)
  Receive Date: 20190924
  Receipt Date: 20190924
  Transmission Date: 20191005
  Serious: No
  Sender: FDA-Public Use
  Company Number: US-CHIESI USA, INC.-US-2018CHI000526

PATIENT
  Sex: Male

DRUGS (2)
  1. CLEVIPREX [Suspect]
     Active Substance: CLEVIDIPINE
     Indication: HAEMORRHAGIC STROKE
  2. CLEVIPREX [Suspect]
     Active Substance: CLEVIDIPINE
     Indication: BLOOD PRESSURE MANAGEMENT
     Dosage: (26 MG/H DAILY DOSE)
     Route: 042

REACTIONS (1)
  - Prescribed overdose [Recovered/Resolved]
